FAERS Safety Report 5794738-1 (Version None)
Quarter: 2008Q2

REPORT INFORMATION
  Report Type: 
  Country: None (occurrence: None)
  Receive Date: 20080630
  Receipt Date: 20080623
  Transmission Date: 20081010
  Serious: Yes (Hospitalization)
  Sender: FDA-Public Use
  Company Number: AU-AVENTIS-200816063GDDC

PATIENT
  Age: 77 Year
  Sex: Female

DRUGS (5)
  1. ARAVA [Suspect]
     Route: 048
     Dates: start: 20080215
  2. PREDNISOLONE [Concomitant]
     Dosage: DOSE: UNK
  3. VIT D [Concomitant]
     Dosage: DOSE: UNK
  4. CALCIUM SUPPLEMENTS [Concomitant]
     Dosage: DOSE: UNK
  5. PANADEINE                          /00116401/ [Concomitant]
     Dosage: DOSE: UNK

REACTIONS (3)
  - CHEST PAIN [None]
  - DYSPHAGIA [None]
  - FALL [None]
